FAERS Safety Report 24121418 (Version 3)
Quarter: 2024Q3

REPORT INFORMATION
  Report Type: Spontaneous
  Country: ES (occurrence: ES)
  Receive Date: 20240722
  Receipt Date: 20240822
  Transmission Date: 20241016
  Serious: Yes (Hospitalization, Other)
  Sender: NOVA LABORATORIES
  Company Number: ES-Nova Laboratories Limited-2159443

PATIENT
  Age: 5 Month
  Sex: Male

DRUGS (6)
  1. PURIXAN [Suspect]
     Active Substance: MERCAPTOPURINE
     Indication: Immunosuppressant drug therapy
  2. CYCLOSPORINE [Suspect]
     Active Substance: CYCLOSPORINE
  3. METHYLPREDNISOLONE [Suspect]
     Active Substance: METHYLPREDNISOLONE
  4. MERCAPTOPURINE [Suspect]
     Active Substance: MERCAPTOPURINE
  5. METHYLPREDNISOLONE [Suspect]
     Active Substance: METHYLPREDNISOLONE
  6. FLUDARABINE PHOSPHATE [Suspect]
     Active Substance: FLUDARABINE PHOSPHATE

REACTIONS (4)
  - Acute respiratory distress syndrome [Unknown]
  - Gastroenteritis astroviral [Recovered/Resolved]
  - Gastroenteritis rotavirus [Recovered/Resolved]
  - Septic shock [Unknown]
